FAERS Safety Report 8504141-9 (Version None)
Quarter: 2012Q3

REPORT INFORMATION
  Report Type: 
  Country: None (occurrence: None)
  Receive Date: 20120711
  Receipt Date: 20120629
  Transmission Date: 20120928
  Serious: Yes (Death)
  Sender: FDA-Public Use
  Company Number: FR-009507513-1205FRA00067

PATIENT

DRUGS (3)
  1. METFORMIN HCL [Concomitant]
     Dosage: 700 MG, TID
     Route: 048
  2. SITAGLIPTIN PHOSPHATE [Suspect]
     Indication: TYPE 2 DIABETES MELLITUS
     Dosage: 100 MG, QD
     Route: 048
     Dates: start: 20100407, end: 20120310
  3. COUMADIN [Concomitant]
     Dosage: UNK
     Dates: start: 20110407, end: 20120310

REACTIONS (1)
  - CEREBROVASCULAR ACCIDENT [None]
